FAERS Safety Report 7040227-6 (Version None)
Quarter: 2010Q4

REPORT INFORMATION
  Report Type: 
  Country: None (occurrence: None)
  Receive Date: 20101012
  Receipt Date: 20101006
  Transmission Date: 20110411
  Serious: Yes (Other)
  Sender: FDA-Public Use
  Company Number: US-AMGEN-KDL444343

PATIENT
  Sex: Female
  Weight: 74.9 kg

DRUGS (5)
  1. PROCRIT [Suspect]
     Indication: RENAL FAILURE CHRONIC
     Route: 058
     Dates: start: 20080101
  2. SEROQUEL [Concomitant]
     Route: 048
     Dates: start: 20070301
  3. KLONOPIN [Concomitant]
     Route: 048
     Dates: start: 20060101
  4. LIPITOR [Concomitant]
     Route: 048
     Dates: start: 20070101, end: 20100901
  5. PRAVASTATIN [Concomitant]
     Route: 048
     Dates: start: 20101001

REACTIONS (3)
  - NAIL BED BLEEDING [None]
  - NAIL BED TENDERNESS [None]
  - NAIL DISCOLOURATION [None]
